FAERS Safety Report 18417627 (Version 3)
Quarter: 2021Q2

REPORT INFORMATION
  Report Type: Spontaneous
  Country: US (occurrence: US)
  Receive Date: 20201022
  Receipt Date: 20210421
  Transmission Date: 20210717
  Serious: Yes (Other)
  Sender: FDA-Public Use
  Company Number: 2020SGN02413

PATIENT
  Sex: Female

DRUGS (1)
  1. TUKYSA [Suspect]
     Active Substance: TUCATINIB
     Indication: NEOPLASM MALIGNANT
     Dosage: UNK, BID

REACTIONS (3)
  - Unevaluable event [Unknown]
  - Appendicectomy [Unknown]
  - Product dose omission issue [Unknown]
